FAERS Safety Report 8586866-2 (Version None)
Quarter: 2012Q3

REPORT INFORMATION
  Report Type: 
  Country: None (occurrence: None)
  Receive Date: 20120810
  Receipt Date: 20120726
  Transmission Date: 20120928
  Serious: Yes (Other)
  Sender: FDA-Public Use
  Company Number: CHPA2012US016766

PATIENT
  Sex: Female

DRUGS (3)
  1. STOOL SOFTENER [Concomitant]
     Indication: CONSTIPATION
     Dosage: UNK, UNK
  2. ALLERGY MEDICATION [Concomitant]
     Indication: SEASONAL ALLERGY
     Dosage: UNK, UNK
  3. BENEFIBER W/ WHEAT DEXTRIN [Suspect]
     Indication: CONSTIPATION
     Dosage: 2 TSP, BID
     Route: 048

REACTIONS (4)
  - OFF LABEL USE [None]
  - GASTRIC POLYPS [None]
  - THERAPEUTIC RESPONSE UNEXPECTED [None]
  - VOLVULUS [None]
